FAERS Safety Report 22216605 (Version 1)
Quarter: 2023Q2

REPORT INFORMATION
  Report Type: Other
  Country: US (occurrence: US)
  Receive Date: 20230417
  Receipt Date: 20230417
  Transmission Date: 20230721
  Serious: No
  Sender: FDA-Public Use
  Company Number: US-APOTEX-2023AP004465

PATIENT
  Sex: Male

DRUGS (2)
  1. TIZANIDINE [Suspect]
     Active Substance: TIZANIDINE
     Indication: Product used for unknown indication
     Dosage: UNK
     Route: 065
  2. TIZANIDINE [Suspect]
     Active Substance: TIZANIDINE
     Dosage: UNK
     Route: 065

REACTIONS (8)
  - Condition aggravated [Unknown]
  - Gait disturbance [Unknown]
  - Hypertension [Unknown]
  - Product size issue [Unknown]
  - Product physical issue [Unknown]
  - Product solubility abnormal [Unknown]
  - Product substitution issue [Unknown]
  - Drug ineffective [Unknown]

NARRATIVE: CASE EVENT DATE: 20230102
